FAERS Safety Report 7625504-X (Version None)
Quarter: 2011Q3

REPORT INFORMATION
  Report Type: 
  Country: None (occurrence: None)
  Receive Date: 20110721
  Receipt Date: 20110324
  Transmission Date: 20111222
  Serious: Yes (Hospitalization)
  Sender: FDA-Public Use
  Company Number: US-KINGPHARMUSA00001-K201100345

PATIENT
  Sex: Female

DRUGS (3)
  1. PREDNISONE [Suspect]
  2. SEPTRA [Suspect]
     Dosage: UNK
     Route: 048
  3. RAPAMUNE [Suspect]

REACTIONS (1)
  - LIVER FUNCTION TEST ABNORMAL [None]
